FAERS Safety Report 6141697-8 (Version None)
Quarter: 2009Q1

REPORT INFORMATION
  Report Type: 
  Country: None (occurrence: None)
  Receive Date: 20090331
  Receipt Date: 20090317
  Transmission Date: 20090719
  Serious: Yes (Hospitalization)
  Sender: FDA-Public Use
  Company Number: 2009S1004620

PATIENT
  Age: 16 Year
  Sex: Male

DRUGS (2)
  1. ACYCLOVIR [Suspect]
     Indication: HERPES ZOSTER
     Dosage: 30 MG/KG; DAILY; INTRAVENOUS
     Route: 042
  2. CEFOTAXINE [Concomitant]

REACTIONS (4)
  - HYPERTENSION [None]
  - NEPHROPATHY TOXIC [None]
  - RASH MORBILLIFORM [None]
  - RENAL FAILURE ACUTE [None]
